FAERS Safety Report 5683622-X (Version None)
Quarter: 2008Q1

REPORT INFORMATION
  Report Type: 
  Country: None (occurrence: None)
  Receive Date: 20080328
  Receipt Date: 20061116
  Transmission Date: 20080703
  Serious: Yes (Other)
  Sender: FDA-Public Use
  Company Number: US-BAYER-US-2006-018521

PATIENT
  Age: 23 Year
  Sex: Female
  Weight: 44 kg

DRUGS (1)
  1. MIRENA [Suspect]
     Route: 015
     Dates: start: 20050111, end: 20060725

REACTIONS (6)
  - ABDOMINAL DISTENSION [None]
  - OVARIAN CYST [None]
  - POST PROCEDURAL HAEMORRHAGE [None]
  - POSTOPERATIVE CONSTIPATION [None]
  - UTERINE RUPTURE [None]
  - VAGINITIS BACTERIAL [None]
